FAERS Safety Report 17420374 (Version 1)
Quarter: 2020Q1

REPORT INFORMATION
  Report Type: Spontaneous
  Country: US (occurrence: US)
  Receive Date: 20200214
  Receipt Date: 20200214
  Transmission Date: 20200409
  Serious: No
  Sender: FDA-Public Use
  Company Number: US-TEVA-2020-US-1186083

PATIENT
  Sex: Female

DRUGS (27)
  1. COPAXONE [Suspect]
     Active Substance: GLATIRAMER ACETATE
     Route: 058
     Dates: start: 20180317
  2. HUMULIN N INJ U-100 [Concomitant]
     Dates: start: 20180502
  3. PANTOPRAZOLE [Concomitant]
     Active Substance: PANTOPRAZOLE
     Dates: start: 20190624, end: 20200322
  4. METOPROL TAR [Concomitant]
     Dates: start: 20190808, end: 20200429
  5. METOPROL TAR [Concomitant]
     Dates: start: 20200130, end: 20200802
  6. HUMALOG [Concomitant]
     Active Substance: INSULIN LISPRO
     Dates: start: 20200122, end: 20200501
  7. VITAMIN D [Concomitant]
     Active Substance: VITAMIN D NOS
     Dosage: VITAMIND CAP 400UNIT
     Dates: start: 20190515
  8. LOSARTAN. [Concomitant]
     Active Substance: LOSARTAN
     Dates: start: 20191206, end: 20200603
  9. POTASSIUM [Concomitant]
     Active Substance: POTASSIUM
     Dates: start: 20200207
  10. HUMULIN N INJ U-100 [Concomitant]
     Dosage: HUMULIN N INJ U-100
     Dates: start: 20190722, end: 20200502
  11. LASIX [Concomitant]
     Active Substance: FUROSEMIDE
     Dates: start: 20190515
  12. METHIMAZOLE. [Concomitant]
     Active Substance: METHIMAZOLE
     Dates: start: 20190626, end: 20200322
  13. METHIMAZOLE. [Concomitant]
     Active Substance: METHIMAZOLE
     Dates: start: 20191202, end: 20200530
  14. CLOPIDOGREL [Concomitant]
     Active Substance: CLOPIDOGREL BISULFATE
     Dates: start: 20190910, end: 20200308
  15. FUROSEMIDE. [Concomitant]
     Active Substance: FUROSEMIDE
     Dates: start: 20200122, end: 20200322
  16. METOPROL TAR [Concomitant]
     Dates: start: 20200130, end: 20200728
  17. CLOPIDOGREL [Concomitant]
     Active Substance: CLOPIDOGREL BISULFATE
     Dates: start: 20190908, end: 20200306
  18. HUMALOG [Concomitant]
     Active Substance: INSULIN LISPRO
     Dates: start: 20200124, end: 20200710
  19. AMPYRA [Concomitant]
     Active Substance: DALFAMPRIDINE
  20. PANTOPRAZOLE [Concomitant]
     Active Substance: PANTOPRAZOLE
     Dates: start: 20200102, end: 20200630
  21. METOPROL TAR [Concomitant]
     Dates: start: 20191101, end: 20200429
  22. INSULIN SYRG [Concomitant]
     Dosage: INSULIN SYRG MIS 1 ML/29G
     Dates: start: 20191106, end: 20200504
  23. HYDROCO/APAP [Concomitant]
     Active Substance: ACETAMINOPHEN\HYDROCODONE
     Dosage: HYDROCO/APAP TAB 5-325MG
     Dates: start: 20200111, end: 20200311
  24. PANTOPRAZOLE [Concomitant]
     Active Substance: PANTOPRAZOLE
     Dates: start: 20191229, end: 20200626
  25. CLOPIDOGREL [Concomitant]
     Active Substance: CLOPIDOGREL BISULFATE
     Dates: start: 20191216, end: 20200614
  26. INSULIN SYRG [Concomitant]
     Dosage: INSULIN SYRG MIS 0.5/31 G
     Dates: start: 20191111, end: 20200510
  27. HUMALOG [Concomitant]
     Active Substance: INSULIN LISPRO
     Dates: start: 20191102, end: 20200430

REACTIONS (1)
  - Gait disturbance [Unknown]
